FAERS Safety Report 7797644-6 (Version None)
Quarter: 2011Q4

REPORT INFORMATION
  Report Type: 
  Country: None (occurrence: None)
  Receive Date: 20111005
  Receipt Date: 20111004
  Transmission Date: 20120403
  Serious: Yes (Other)
  Sender: FDA-Public Use
  Company Number: GB-ABBOTT-11P-167-0843941-00

PATIENT
  Sex: Female

DRUGS (2)
  1. AZULFIDINE [Concomitant]
     Indication: SERONEGATIVE ARTHRITIS
  2. HUMIRA [Suspect]
     Indication: SERONEGATIVE ARTHRITIS
     Route: 058
     Dates: start: 20100622, end: 20110601

REACTIONS (3)
  - COLITIS ULCERATIVE [None]
  - GASTROINTESTINAL CARCINOMA [None]
  - COLON CANCER METASTATIC [None]
